FAERS Safety Report 4837348-2 (Version None)
Quarter: 2005Q4

REPORT INFORMATION
  Report Type: 
  Country: None (occurrence: None)
  Receive Date: 20051128
  Receipt Date: 20051116
  Transmission Date: 20060501
  Serious: Yes (Other)
  Sender: FDA-Public Use
  Company Number: US-JNJFOC-20051000202

PATIENT
  Sex: Male
  Weight: 95.26 kg

DRUGS (10)
  1. REMICADE [Suspect]
     Dosage: 6 VIALS
     Route: 042
  2. REMICADE [Suspect]
     Indication: PSORIATIC ARTHROPATHY
     Route: 042
  3. LEXAPRO [Concomitant]
  4. ATENOLOL [Concomitant]
     Indication: HYPERTENSION
  5. LIPITOR [Concomitant]
  6. ASPIRIN [Concomitant]
  7. FOLIC ACID [Concomitant]
  8. GLYBERIDE [Concomitant]
  9. LISINOPRIL [Concomitant]
     Indication: HYPERTENSION
  10. METHOTREXATE [Concomitant]

REACTIONS (2)
  - ANORGASMIA [None]
  - BLOOD GLUCOSE DECREASED [None]
